FAERS Safety Report 9702051 (Version 1)
Quarter: 2013Q4

REPORT INFORMATION
  Report Type: Spontaneous
  Country: US (occurrence: None)
  Receive Date: 20131119
  Receipt Date: 20131119
  Transmission Date: 20140711
  Serious: Yes (Life-Threatening, Hospitalization)
  Sender: FDA-Public Use
  Company Number: 2013P1020888

PATIENT
  Age: 11 Year
  Sex: Male
  Weight: 52 kg

DRUGS (2)
  1. BENZTROPINE MESYLATE [Suspect]
     Indication: POISONING DELIBERATE
     Route: 048
  2. RISPERIDONE [Suspect]
     Indication: POISONING DELIBERATE
     Route: 048

REACTIONS (7)
  - Sinus tachycardia [None]
  - Mydriasis [None]
  - Mucosal dryness [None]
  - Anhidrosis [None]
  - Electrocardiogram QRS complex shortened [None]
  - Poisoning deliberate [None]
  - Delirium [None]
